FAERS Safety Report 5623581-9 (Version None)
Quarter: 2008Q1

REPORT INFORMATION
  Report Type: 
  Country: None (occurrence: None)
  Receive Date: 20080212
  Receipt Date: 20080204
  Transmission Date: 20080703
  Serious: Yes (Life-Threatening, Hospitalization, Other)
  Sender: FDA-Public Use
  Company Number: US-ELI_LILLY_AND_COMPANY-US200802000915

PATIENT
  Sex: Female

DRUGS (8)
  1. HUMALOG [Suspect]
     Indication: DIABETES MELLITUS
  2. HUMALOG MIX 75/25 [Suspect]
     Indication: DIABETES MELLITUS
  3. PROTONIX [Concomitant]
  4. LISINOPRIL [Concomitant]
  5. PROPRANOLOL [Concomitant]
  6. LASIX [Concomitant]
  7. ALDACTONE [Concomitant]
  8. TRACLEER [Concomitant]

REACTIONS (4)
  - DYSPNOEA [None]
  - HAEMORRHAGE [None]
  - PULMONARY HYPERTENSION [None]
  - RESUSCITATION [None]
